FAERS Safety Report 15546200 (Version 1)
Quarter: 2018Q4

REPORT INFORMATION
  Report Type: Spontaneous
  Country: BR (occurrence: BR)
  Receive Date: 20181024
  Receipt Date: 20181024
  Transmission Date: 20190205
  Serious: Yes (Other)
  Sender: FDA-Public Use
  Company Number: PHHY2018BR132953

PATIENT
  Sex: Female

DRUGS (2)
  1. SYSTANE ULTRA [Suspect]
     Active Substance: POLYETHYLENE GLYCOL 400\PROPYLENE GLYCOL
     Indication: OCULAR HYPERAEMIA
  2. SYSTANE ULTRA [Suspect]
     Active Substance: POLYETHYLENE GLYCOL 400\PROPYLENE GLYCOL
     Indication: DRY EYE
     Dosage: UNK UNK, 10QD
     Route: 047

REACTIONS (4)
  - Eye disorder [Recovered/Resolved with Sequelae]
  - Eye inflammation [Recovered/Resolved with Sequelae]
  - Corneal exfoliation [Recovered/Resolved with Sequelae]
  - Drug ineffective [Unknown]
